FAERS Safety Report 4905975-X (Version None)
Quarter: 2006Q1

REPORT INFORMATION
  Report Type: 
  Country: None (occurrence: None)
  Receive Date: 20060206
  Receipt Date: 20060123
  Transmission Date: 20060701
  Serious: Yes (Death, Other)
  Sender: FDA-Public Use
  Company Number: 2005128935

PATIENT
  Age: 28 Year
  Sex: Male

DRUGS (3)
  1. NEURONTIN [Suspect]
     Indication: ALCOHOLISM
     Dates: start: 20021201
  2. NEURONTIN [Suspect]
     Indication: GENERALISED ANXIETY DISORDER
     Dates: start: 20021201
  3. NEURONTIN [Suspect]
     Indication: MAJOR DEPRESSION
     Dates: start: 20021201

REACTIONS (1)
  - COMPLETED SUICIDE [None]
